FAERS Safety Report 6893212-9 (Version None)
Quarter: 2010Q3

REPORT INFORMATION
  Report Type: 
  Country: None (occurrence: None)
  Receive Date: 20100731
  Receipt Date: 20090630
  Transmission Date: 20110219
  Serious: No
  Sender: FDA-Public Use
  Company Number: US-PFIZER INC-2009193574

PATIENT
  Sex: Female

DRUGS (4)
  1. FLAGYL [Suspect]
     Indication: LIVER ABSCESS
     Dosage: 250 MG, 3X/DAY
     Route: 048
     Dates: start: 20090323
  2. DILTIAZEM [Concomitant]
     Dosage: UNK
  3. HYZAAR [Concomitant]
     Dosage: UNK
  4. THEOPHYLLINE [Concomitant]
     Dosage: UNK

REACTIONS (3)
  - BLOOD CREATININE INCREASED [None]
  - BLOOD UREA INCREASED [None]
  - FAECES DISCOLOURED [None]
